FAERS Safety Report 18901141 (Version 1)
Quarter: 2021Q1

REPORT INFORMATION
  Report Type: Spontaneous
  Country: US (occurrence: US)
  Receive Date: 20210216
  Receipt Date: 20210216
  Transmission Date: 20210420
  Serious: No
  Sender: FDA-Public Use
  Company Number: US-PFIZER INC-2021152995

PATIENT
  Age: 90 Year
  Sex: Female
  Weight: 71.67 kg

DRUGS (1)
  1. GABAPENTIN. [Suspect]
     Active Substance: GABAPENTIN
     Dosage: 300 MG, 2X/DAY [300MG SHE WAS TAKING IT TWICE A DAY, AM AND PM]

REACTIONS (3)
  - Burning sensation [Unknown]
  - Insomnia [Unknown]
  - Intentional dose omission [Unknown]
